FAERS Safety Report 8549457-5 (Version None)
Quarter: 2012Q2

REPORT INFORMATION
  Report Type: 
  Country: None (occurrence: None)
  Receive Date: 20120416
  Receipt Date: 20101029
  Transmission Date: 20120825
  Serious: Yes (Hospitalization)
  Sender: FDA-Public Use
  Company Number: PHHY2010US66281

PATIENT
  Age: 52 Year
  Sex: Female
  Weight: 117.9 kg

DRUGS (2)
  1. DIOVAN [Suspect]
     Indication: HYPERTENSION
     Dosage: 160 MG, QD, ORAL
     Route: 048
     Dates: start: 20070101, end: 20100907
  2. SYNTHROID [Concomitant]

REACTIONS (5)
  - ANGIOEDEMA [None]
  - HYPERSENSITIVITY [None]
  - LEUKOCYTOSIS [None]
  - RASH [None]
  - URTICARIA [None]
